FAERS Safety Report 6167844-X (Version None)
Quarter: 2009Q2

REPORT INFORMATION
  Report Type: 
  Country: None (occurrence: None)
  Receive Date: 20090423
  Receipt Date: 20090318
  Transmission Date: 20091009
  Serious: Yes (Disabling)
  Sender: FDA-Public Use
  Company Number: 230202K09BRA

PATIENT
  Age: 25 Year
  Sex: Female

DRUGS (1)
  1. REBIF [Suspect]
     Indication: MULTIPLE SCLEROSIS
     Dosage: 22 MCG, 3 IN 1 WEEKS; 44 MCG, 3 IN 1 WEEKS
     Dates: start: 20061208, end: 20081101

REACTIONS (1)
  - MULTIPLE SCLEROSIS RELAPSE [None]
